FAERS Safety Report 5148009-7 (Version None)
Quarter: 2006Q4

REPORT INFORMATION
  Report Type: 
  Country: None (occurrence: None)
  Receive Date: 20061110
  Receipt Date: 20061031
  Transmission Date: 20070319
  Serious: Yes (Other)
  Sender: FDA-Public Use
  Company Number: US-GLAXOSMITHKLINE-A0625619A

PATIENT
  Age: 51 Year
  Sex: Female

DRUGS (6)
  1. ADVAIR DISKUS 100/50 [Suspect]
     Indication: ASTHMA
     Dosage: 2PUFF TWICE PER DAY
     Route: 055
  2. TRANXENE [Concomitant]
  3. NEXIUM [Concomitant]
  4. TYLENOL [Concomitant]
  5. ADVIL [Concomitant]
  6. ANTACID TAB [Concomitant]

REACTIONS (4)
  - ASTHMA [None]
  - BRONCHOSPASM [None]
  - DYSPHONIA [None]
  - THROAT TIGHTNESS [None]
